FAERS Safety Report 6242052-2 (Version None)
Quarter: 2009Q2

REPORT INFORMATION
  Report Type: 
  Country: None (occurrence: None)
  Receive Date: 20090617
  Receipt Date: 20090611
  Transmission Date: 20091009
  Serious: Yes (Hospitalization)
  Sender: FDA-Public Use
  Company Number: THYM-1001058

PATIENT
  Age: 64 Year
  Weight: 66 kg

DRUGS (6)
  1. THYMOGLOBULIN [Suspect]
     Dosage: 30 MG, INTRAVENOUS
     Dates: start: 20090318, end: 20090325
  2. DALTEPARIN SODIUM [Suspect]
     Dosage: 2500 U
     Dates: start: 20090318, end: 20090331
  3. ASPIRIN [Suspect]
     Dosage: 150 MG
     Dates: start: 20081008, end: 20090331
  4. SIMULECT [Concomitant]
  5. METHYLPREDNISOLONE [Concomitant]
  6. ATENOLOL [Concomitant]

REACTIONS (1)
  - OPERATIVE HAEMORRHAGE [None]
